FAERS Safety Report 25153015 (Version 5)
Quarter: 2025Q3

REPORT INFORMATION
  Report Type: Report from Study
  Country: US (occurrence: US)
  Receive Date: 20250403
  Receipt Date: 20250902
  Transmission Date: 20251021
  Serious: Yes (Other)
  Sender: AVERITAS
  Company Number: US-GRUNENTHAL-2025-104368

PATIENT
  Age: 58 Year
  Sex: Female

DRUGS (2)
  1. QUTENZA [Suspect]
     Active Substance: CAPSAICIN
     Indication: Diabetic neuropathy
     Route: 061
     Dates: start: 20250314, end: 20250314
  2. QUTENZA [Suspect]
     Active Substance: CAPSAICIN
     Route: 061
     Dates: start: 20241210, end: 20241210

REACTIONS (9)
  - Application site burn [Recovered/Resolved]
  - Wrong technique in product usage process [Unknown]
  - Cough [Unknown]
  - Throat irritation [Unknown]
  - Accidental exposure to product [Unknown]
  - Pain in extremity [Unknown]
  - Localised infection [Recovered/Resolved]
  - Pain in extremity [Unknown]
  - Localised infection [Unknown]

NARRATIVE: CASE EVENT DATE: 20250101
